FAERS Safety Report 7889494-7 (Version None)
Quarter: 2011Q4

REPORT INFORMATION
  Report Type: 
  Country: None (occurrence: None)
  Receive Date: 20111103
  Receipt Date: 20111031
  Transmission Date: 20120403
  Serious: Yes (Hospitalization, Disabling, Other)
  Sender: FDA-Public Use
  Company Number: US-PFIZER INC-2011152948

PATIENT
  Sex: Female

DRUGS (6)
  1. XANAX [Concomitant]
     Indication: ANXIETY
     Dosage: 5 MG, UNK
     Dates: start: 20070101
  2. CHANTIX [Suspect]
     Indication: SMOKING CESSATION THERAPY
     Dosage: STARTER KIT
     Dates: start: 20100501, end: 20100703
  3. LEXAPRO [Concomitant]
     Indication: ANXIETY
     Dosage: 20 MG, UNK
     Dates: start: 20050101
  4. LEXAPRO [Concomitant]
     Indication: SLEEP DISORDER
  5. SOMA [Concomitant]
     Indication: MUSCLE SPASMS
     Dosage: 350 MG, UNK
     Dates: start: 20090101
  6. VICODIN [Concomitant]
     Indication: PAIN
     Dosage: UNK
     Dates: start: 20050101, end: 20110101

REACTIONS (8)
  - NIGHTMARE [None]
  - ANXIETY [None]
  - INSOMNIA [None]
  - CONVULSION [None]
  - PAIN [None]
  - FATIGUE [None]
  - MUSCLE SPASMS [None]
  - DEPRESSION [None]
